FAERS Safety Report 10156616 (Version 1)
Quarter: 2014Q2

REPORT INFORMATION
  Report Type: Spontaneous
  Country: US (occurrence: None)
  Receive Date: 20140505
  Receipt Date: 20140505
  Transmission Date: 20141212
  Serious: Yes (Hospitalization)
  Sender: FDA-Public Use
  Company Number: IPC201404-000200

PATIENT
  Age: 78 Year
  Sex: Male

DRUGS (7)
  1. WARFARIN [Suspect]
  2. METOPROLOL TARTRATE [Suspect]
  3. AMIODARONE [Suspect]
     Indication: ATRIAL FIBRILLATION
  4. SIMVASTATIN [Suspect]
     Indication: ATRIAL FIBRILLATION
  5. TAMSULOSIN [Suspect]
  6. FINASTERIDE [Suspect]
  7. ASPIRIN [Suspect]

REACTIONS (11)
  - Myxoedema coma [None]
  - Cardio-respiratory arrest [None]
  - Lip injury [None]
  - International normalised ratio increased [None]
  - Drug interaction [None]
  - Lip haemorrhage [None]
  - Bradycardia [None]
  - Hypothermia [None]
  - Abdominal distension [None]
  - Pericardial effusion [None]
  - Ventricular hypertrophy [None]
